FAERS Safety Report 12682802 (Version 1)
Quarter: 2016Q3

REPORT INFORMATION
  Report Type: Spontaneous
  Country: US (occurrence: US)
  Receive Date: 20160825
  Receipt Date: 20160825
  Transmission Date: 20161109
  Serious: Yes (Death)
  Sender: FDA-Public Use
  Company Number: US-ROCHE-1819696

PATIENT
  Age: 70 Year
  Sex: Male

DRUGS (1)
  1. CELLCEPT [Suspect]
     Active Substance: MYCOPHENOLATE MOFETIL\MYCOPHENOLATE MOFETIL HYDROCHLORIDE
     Indication: RENAL TRANSPLANT
     Dosage: 2 CAPSULES
     Route: 048
     Dates: start: 20140609, end: 20160425

REACTIONS (2)
  - Dementia [Fatal]
  - Failure to thrive [Fatal]

NARRATIVE: CASE EVENT DATE: 20160718
